FAERS Safety Report 9742376 (Version 3)
Quarter: 2014Q1

REPORT INFORMATION
  Report Type: Spontaneous
  Country: FR (occurrence: FR)
  Receive Date: 20131210
  Receipt Date: 20140117
  Transmission Date: 20141002
  Serious: Yes (Hospitalization)
  Sender: FDA-Public Use
  Company Number: FR-MERCK-1312FRA001820

PATIENT
  Age: 33 Year
  Sex: Female

DRUGS (7)
  1. ORGALUTRAN [Suspect]
     Indication: IN VITRO FERTILISATION
     Dosage: 0.25 MG, QD
     Route: 058
     Dates: start: 20121024, end: 20121029
  2. SYNAREL [Suspect]
     Indication: IN VITRO FERTILISATION
     Dosage: 2 DF, BID
     Route: 045
     Dates: start: 20121018, end: 20121019
  3. GONAL-F [Suspect]
     Indication: IN VITRO FERTILISATION
     Dosage: 150 IU, QD
     Route: 058
     Dates: start: 20121018, end: 20121025
  4. MENOPUR [Suspect]
     Indication: IN VITRO FERTILISATION
     Dosage: 225 IU, QD
     Route: 058
     Dates: start: 20121026, end: 20121028
  5. MENOPUR [Suspect]
     Dosage: 220 IU, QD
     Route: 058
     Dates: start: 20121029, end: 20121029
  6. OVITRELLE [Suspect]
     Indication: IN VITRO FERTILISATION
     Dosage: 1 DF, ONCE
     Route: 058
     Dates: start: 20121030, end: 20121030
  7. UTROGESTAN [Suspect]
     Indication: IN VITRO FERTILISATION
     Dosage: 600 MG, QD
     Route: 067
     Dates: start: 20121105

REACTIONS (4)
  - Pleural effusion [Recovered/Resolved]
  - Ascites [Recovered/Resolved]
  - Ovarian hyperstimulation syndrome [Recovered/Resolved]
  - Exposure during pregnancy [Recovered/Resolved]
